FAERS Safety Report 5628958-3 (Version None)
Quarter: 2008Q1

REPORT INFORMATION
  Report Type: 
  Country: None (occurrence: None)
  Receive Date: 20080214
  Receipt Date: 20080205
  Transmission Date: 20080703
  Serious: Yes (Other)
  Sender: FDA-Public Use
  Company Number: 2008SP002930

PATIENT
  Age: 78 Year
  Sex: Female
  Weight: 48.9885 kg

DRUGS (4)
  1. MIRALAX [Suspect]
     Indication: CONSTIPATION
     Dosage: 1 DF;ONCE;PO
     Route: 048
     Dates: start: 20080117
  2. CYANOCOBALAMINE [Concomitant]
  3. DULCOLAX [Concomitant]
  4. MULTI-VITAMIN [Concomitant]

REACTIONS (8)
  - ABDOMINAL DISTENSION [None]
  - DYSPNOEA [None]
  - GASTROINTESTINAL PAIN [None]
  - HEART RATE INCREASED [None]
  - HYPERHIDROSIS [None]
  - PHARYNGEAL OEDEMA [None]
  - RASH [None]
  - SWELLING FACE [None]
